FAERS Safety Report 5079181-5 (Version None)
Quarter: 2006Q3

REPORT INFORMATION
  Report Type: 
  Country: None (occurrence: None)
  Receive Date: 20060814
  Receipt Date: 20060809
  Transmission Date: 20061208
  Serious: Yes (Life-Threatening)
  Sender: FDA-Public Use
  Company Number: FR-GLAXOSMITHKLINE-B0433773A

PATIENT
  Age: 51 Year
  Sex: Female

DRUGS (2)
  1. AUGMENTIN [Suspect]
     Indication: TOOTH ABSCESS
     Dosage: 1UNIT PER DAY
     Route: 048
     Dates: start: 20060428, end: 20060428
  2. ZALDIAR [Concomitant]
     Indication: TOOTH ABSCESS
     Dosage: 1UNIT PER DAY
     Route: 048
     Dates: start: 20060428, end: 20060428

REACTIONS (5)
  - DIARRHOEA [None]
  - HYPERSENSITIVITY [None]
  - PAINFUL RESPIRATION [None]
  - PRURITUS GENERALISED [None]
  - SYNCOPE [None]
